FAERS Safety Report 10449797 (Version 2)
Quarter: 2014Q4

REPORT INFORMATION
  Report Type: Spontaneous
  Country: US (occurrence: US)
  Receive Date: 20140912
  Receipt Date: 20141015
  Transmission Date: 20150528
  Serious: No
  Sender: FDA-Public Use
  Company Number: US-PFIZER INC-2014250685

PATIENT
  Age: 38 Year
  Sex: Female

DRUGS (8)
  1. XOPENEX [Concomitant]
     Active Substance: LEVALBUTEROL HYDROCHLORIDE
     Indication: RESPIRATORY DISORDER
     Dosage: UNK
  2. CORTEF [Suspect]
     Active Substance: HYDROCORTISONE
     Indication: ADDISON^S DISEASE
     Dosage: 10 MG, 2X/DAY
     Route: 048
     Dates: start: 20140602, end: 201409
  3. TRAMADOL [Concomitant]
     Active Substance: TRAMADOL
     Dosage: UNK
  4. FOLTX [Concomitant]
     Active Substance: CYANOCOBALAMIN CO-57\FOLIC ACID\PYRIDOXINE HYDROCHLORIDE
     Dosage: UNK
  5. VITAMIN D [Concomitant]
     Active Substance: CHOLECALCIFEROL
     Dosage: WEEKLY
  6. SYNTHROID [Concomitant]
     Active Substance: LEVOTHYROXINE SODIUM
     Dosage: 100 UG
  7. ADVAIR HFA [Concomitant]
     Active Substance: FLUTICASONE PROPIONATE\SALMETEROL XINAFOATE
     Indication: RESPIRATORY DISORDER
     Dosage: UNK
  8. SAVELLA [Concomitant]
     Active Substance: MILNACIPRAN HYDROCHLORIDE
     Dosage: UNK

REACTIONS (2)
  - Drug ineffective [Unknown]
  - Product quality issue [Unknown]

NARRATIVE: CASE EVENT DATE: 2014
